FAERS Safety Report 10807256 (Version 1)
Quarter: 2015Q1

REPORT INFORMATION
  Report Type: Report from Study
  Country: US (occurrence: US)
  Receive Date: 20150217
  Receipt Date: 20150217
  Transmission Date: 20150721
  Serious: No
  Sender: FDA-Public Use
  Company Number: US-ABBVIE-14K-163-1258633-00

PATIENT
  Age: 63 Year
  Sex: Female

DRUGS (10)
  1. AZATHIOPRINE. [Concomitant]
     Active Substance: AZATHIOPRINE
     Indication: COLITIS ULCERATIVE
     Dosage: IN EVENING
  2. MULTIVITAMIN [Concomitant]
     Active Substance: VITAMINS
     Indication: PRODUCT USED FOR UNKNOWN INDICATION
  3. CALCIUM [Concomitant]
     Active Substance: CALCIUM
     Indication: PRODUCT USED FOR UNKNOWN INDICATION
  4. FISH OIL [Concomitant]
     Active Substance: FISH OIL
     Indication: PROPHYLAXIS
  5. OMEGA 3 [Concomitant]
     Active Substance: OMEGA-3 FATTY ACIDS
     Indication: CARDIOVASCULAR EVENT PROPHYLAXIS
  6. LIALDA [Concomitant]
     Active Substance: MESALAMINE
     Indication: COLITIS ULCERATIVE
     Dosage: 2 TABLETS IN MORNING AND 2 TABLETS IN EVENING
  7. HUMIRA [Suspect]
     Active Substance: ADALIMUMAB
     Indication: COLITIS ULCERATIVE
     Route: 065
     Dates: start: 20140321
  8. EFFEXOR [Concomitant]
     Active Substance: VENLAFAXINE HYDROCHLORIDE
     Indication: DEPRESSION
  9. FISH OIL [Concomitant]
     Active Substance: FISH OIL
     Indication: CARDIOVASCULAR EVENT PROPHYLAXIS
  10. OMEGA 3 [Concomitant]
     Active Substance: OMEGA-3 FATTY ACIDS
     Indication: PROPHYLAXIS

REACTIONS (14)
  - Abdominal discomfort [Recovering/Resolving]
  - Drug effect incomplete [Recovering/Resolving]
  - Defaecation urgency [Recovering/Resolving]
  - Dysuria [Recovering/Resolving]
  - Fatigue [Recovering/Resolving]
  - Hernia [Not Recovered/Not Resolved]
  - Rectal haemorrhage [Recovering/Resolving]
  - Abdominal discomfort [Not Recovered/Not Resolved]
  - Decreased interest [Recovering/Resolving]
  - Abdominal pain lower [Recovering/Resolving]
  - Rectal discharge [Recovering/Resolving]
  - Depression [Recovering/Resolving]
  - Cystocele [Recovering/Resolving]
  - Oedema genital [Not Recovered/Not Resolved]

NARRATIVE: CASE EVENT DATE: 2014
